FAERS Safety Report 8775264 (Version 2)
Quarter: 2012Q4

REPORT INFORMATION
  Report Type: 
  Country: US (occurrence: US)
  Receive Date: 20120910
  Receipt Date: 20121106
  Transmission Date: 20130627
  Serious: Yes (Other)
  Sender: FDA-Public Use
  Company Number: US-US-EMD SERONO, INC.-7159169

PATIENT
  Age: 54 Year
  Sex: Female
  Weight: 125 kg

DRUGS (1)
  1. REBIF [Suspect]
     Indication: MULTIPLE SCLEROSIS
     Route: 058
     Dates: start: 20101129

REACTIONS (10)
  - Rib fracture [Recovering/Resolving]
  - Scapula fracture [Recovering/Resolving]
  - Burning sensation [Unknown]
  - Fall [Unknown]
  - Balance disorder [Unknown]
  - Dysarthria [Recovering/Resolving]
  - Muscular weakness [Recovering/Resolving]
  - Feeling abnormal [Not Recovered/Not Resolved]
  - Paraesthesia [Not Recovered/Not Resolved]
  - Fatigue [Not Recovered/Not Resolved]
